FAERS Safety Report 9030658 (Version 5)
Quarter: 2013Q2

REPORT INFORMATION
  Report Type: Report from Study
  Country: DE (occurrence: DE)
  Receive Date: 20130123
  Receipt Date: 20130506
  Transmission Date: 20140414
  Serious: Yes (Hospitalization)
  Sender: FDA-Public Use
  Company Number: DE-VERTEX PHARMACEUTICALS INC.-2013-001001

PATIENT
  Age: 52 Year
  Sex: Male
  Weight: 71 kg

DRUGS (12)
  1. VX-950 (TELAPREVIR) [Suspect]
     Indication: PRODUCT USED FOR UNKNOWN INDICATION
     Dosage: 750 MG, TID
     Route: 048
     Dates: start: 20121106, end: 20130126
  2. RIBAVIRIN [Suspect]
     Indication: PRODUCT USED FOR UNKNOWN INDICATION
     Dosage: DOSAGE FORM: UNSPECIFIED, MED KIT NO R30313
     Route: 048
     Dates: start: 20121106
  3. RIBAVIRIN [Suspect]
     Dosage: DOSAGE FORM: UNSPECIFIED
     Route: 048
  4. RIBAVIRIN [Suspect]
     Dosage: DOSAGE FORM: UNSPECIFIED
     Route: 048
  5. PEG-INTERFERON [Suspect]
     Indication: PRODUCT USED FOR UNKNOWN INDICATION
     Dosage: DOSAGE FORM: UNSPECIFIED
  6. PEG-INTERFERON [Suspect]
     Dosage: DOSAGE FORM: UNSPECIFIED, MED KIT NO P50357?UNSPECIFIED DATE - REDUCED TO 135 MCG/WEEK
     Route: 065
     Dates: start: 20121106
  7. NITROFURANTOIN [Concomitant]
     Indication: URINARY TRACT INFECTION
     Dosage: 100 MG, BID
     Route: 048
     Dates: start: 20121127
  8. CIPROFLOXACIN [Concomitant]
     Indication: URINARY TRACT INFECTION
     Dosage: 500 MG, BID
     Route: 048
     Dates: start: 20121108, end: 20121114
  9. PASPERTIN [Concomitant]
     Indication: NAUSEA
     Route: 048
     Dates: start: 20130102
  10. BEPANTHENE [Concomitant]
     Indication: STOMATITIS
     Route: 065
  11. ALL OTHER THERAPEUTIC DRUGS [Concomitant]
     Indication: STOMATITIS
     Dosage: UNK, PRN
     Route: 048
     Dates: start: 20130102
  12. TEPILTA [Concomitant]
     Indication: STOMATITIS
     Dosage: UNK, PRN
     Route: 065
     Dates: start: 20130102

REACTIONS (2)
  - General physical health deterioration [Not Recovered/Not Resolved]
  - Urinary tract infection [Recovered/Resolved]
